FAERS Safety Report 12449605 (Version 1)
Quarter: 2016Q2

REPORT INFORMATION
  Report Type: Other
  Country: KE (occurrence: KE)
  Receive Date: 20160609
  Receipt Date: 20160609
  Transmission Date: 20160815
  Serious: No
  Sender: FDA-Public Use
  Company Number: KE-LUPIN PHARMACEUTICALS INC.-2016-01644

PATIENT
  Age: 38 Year
  Sex: Female

DRUGS (7)
  1. LAMIVUDINE. [Concomitant]
     Active Substance: LAMIVUDINE
     Indication: HIV INFECTION
     Route: 065
  2. TRIMETHOPRIM-SULFAMETHOXAZOLE [Interacting]
     Active Substance: SULFAMETHOXAZOLE\TRIMETHOPRIM
     Indication: DIARRHOEA
     Route: 065
  3. WARFARIN [Interacting]
     Active Substance: WARFARIN
     Route: 065
  4. RIFAMPICIN [Suspect]
     Active Substance: RIFAMPIN
     Indication: PULMONARY TUBERCULOSIS
     Route: 065
  5. EFAVIRENZ [Interacting]
     Active Substance: EFAVIRENZ
     Indication: HIV INFECTION
     Route: 065
  6. STAVUDINE. [Concomitant]
     Active Substance: STAVUDINE
     Indication: HIV INFECTION
     Route: 065
  7. WARFARIN [Interacting]
     Active Substance: WARFARIN
     Indication: DEEP VEIN THROMBOSIS
     Route: 065

REACTIONS (2)
  - International normalised ratio abnormal [Recovered/Resolved]
  - Drug interaction [Unknown]
